FAERS Safety Report 5320229-8 (Version None)
Quarter: 2007Q2

REPORT INFORMATION
  Report Type: 
  Country: None (occurrence: None)
  Receive Date: 20070509
  Receipt Date: 20070501
  Transmission Date: 20071010
  Serious: Yes (Life-Threatening)
  Sender: FDA-Public Use
  Company Number: B0468513A

PATIENT
  Age: 50 Year
  Sex: Female

DRUGS (5)
  1. CEFAMEZIN [Suspect]
     Indication: INDUCTION OF ANAESTHESIA
     Route: 042
     Dates: start: 20070326, end: 20070326
  2. PENTAZOCINE LACTATE [Suspect]
     Route: 042
     Dates: start: 20070326, end: 20070326
  3. VECURONIUM BROMIDE [Suspect]
     Indication: INDUCTION OF ANAESTHESIA
     Dosage: 6MG FOUR TIMES PER DAY
     Route: 042
     Dates: start: 20070326, end: 20070326
  4. PROPOFOL [Suspect]
     Indication: INDUCTION OF ANAESTHESIA
     Dosage: 120MG FOUR TIMES PER DAY
     Route: 042
     Dates: start: 20070326, end: 20070326
  5. ATROPINE SULPHATE [Concomitant]

REACTIONS (8)
  - ANAPHYLACTIC REACTION [None]
  - BLOOD IMMUNOGLOBULIN E INCREASED [None]
  - BLOOD PRESSURE DECREASED [None]
  - DRUG HYPERSENSITIVITY [None]
  - ENDOTRACHEAL INTUBATION COMPLICATION [None]
  - HYPOXIA [None]
  - OXYGEN SATURATION DECREASED [None]
  - RESPIRATORY ARREST [None]
